FAERS Safety Report 19434760 (Version 1)
Quarter: 2021Q2

REPORT INFORMATION
  Report Type: Spontaneous
  Country: US (occurrence: US)
  Receive Date: 20210617
  Receipt Date: 20210617
  Transmission Date: 20210717
  Serious: No
  Sender: FDA-Public Use
  Company Number: US-ROCHE-2605660

PATIENT
  Age: 59 Year
  Sex: Female
  Weight: 56.75 kg

DRUGS (3)
  1. FOLIC ACID. [Concomitant]
     Active Substance: FOLIC ACID
  2. ACTEMRA [Suspect]
     Active Substance: TOCILIZUMAB
     Indication: OCULAR SARCOIDOSIS
     Dosage: 162 MG ONCE A WEEK FOR 4 WEEKS ;ONGOING: YES
     Route: 058
     Dates: start: 20200508
  3. METHOTREXATE. [Concomitant]
     Active Substance: METHOTREXATE
     Dates: start: 201909

REACTIONS (5)
  - No adverse event [Unknown]
  - Intentional product use issue [Unknown]
  - Product dose omission issue [Unknown]
  - Off label use [Unknown]
  - Device malfunction [Unknown]

NARRATIVE: CASE EVENT DATE: 20200515
